FAERS Safety Report 8054145-8 (Version None)
Quarter: 2012Q1

REPORT INFORMATION
  Report Type: 
  Country: None (occurrence: None)
  Receive Date: 20120118
  Receipt Date: 20120113
  Transmission Date: 20120608
  Serious: No
  Sender: FDA-Public Use
  Company Number: US-BAYER-2012-005086

PATIENT
  Age: 2 Year
  Sex: Female
  Weight: 15 kg

DRUGS (1)
  1. ALEVE (CAPLET) [Suspect]
     Dosage: 1 DF, ONCE
     Route: 048
     Dates: start: 20120113, end: 20120113

REACTIONS (1)
  - NO ADVERSE EVENT [None]
